FAERS Safety Report 19725398 (Version 2)
Quarter: 2023Q4

REPORT INFORMATION
  Report Type: Other
  Country: US (occurrence: None)
  Receive Date: 20210819
  Receipt Date: 20231027
  Transmission Date: 20240110
  Serious: Yes (Other)
  Sender: FDA-Public Use
  Company Number: US-ROCHE-2891003

PATIENT
  Sex: Male

DRUGS (9)
  1. OCREVUS [Suspect]
     Active Substance: OCRELIZUMAB
     Indication: Multiple sclerosis
     Dosage: 600 MG IN NACL 0.9% 570 ML IVPB
     Route: 042
     Dates: start: 20210524
  2. SOLU-MEDROL [Concomitant]
     Active Substance: METHYLPREDNISOLONE SODIUM SUCCINATE
  3. HEPARIN [Concomitant]
     Active Substance: HEPARIN SODIUM
  4. FAMOTIDINE [Concomitant]
     Active Substance: FAMOTIDINE
  5. EPIPEN [Concomitant]
     Active Substance: EPINEPHRINE
  6. BENADRYL [Concomitant]
     Active Substance: DIPHENHYDRAMINE HYDROCHLORIDE
  7. CATHFLO ACTIVASE [Concomitant]
     Active Substance: ALTEPLASE
  8. ALBUTEROL [Concomitant]
     Active Substance: ALBUTEROL
  9. TYLENOL [Concomitant]
     Active Substance: ACETAMINOPHEN

REACTIONS (1)
  - Bradycardia [Unknown]
